FAERS Safety Report 7109161-7 (Version None)
Quarter: 2010Q4

REPORT INFORMATION
  Report Type: 
  Country: None (occurrence: None)
  Receive Date: 20101117
  Receipt Date: 20101109
  Transmission Date: 20110411
  Serious: Yes (Other)
  Sender: FDA-Public Use
  Company Number: US-PFIZER INC-2010147312

PATIENT

DRUGS (2)
  1. REVATIO [Suspect]
     Dosage: 80 MG, 3X/DAY
  2. VIAGRA [Suspect]
     Dosage: 75 MG, UNK

REACTIONS (2)
  - HYPOTENSION [None]
  - SURGERY [None]
